FAERS Safety Report 13160523 (Version 1)
Quarter: 2017Q1

REPORT INFORMATION
  Report Type: Spontaneous
  Country: US (occurrence: US)
  Receive Date: 20170128
  Receipt Date: 20170128
  Transmission Date: 20170428
  Serious: No
  Sender: FDA-Public Use
  Company Number: US-009507513-1701USA012361

PATIENT

DRUGS (3)
  1. VINCRISTINE [Suspect]
     Active Substance: VINCRISTINE
     Indication: XANTHOGRANULOMA
  2. DOXORUBICIN [Suspect]
     Active Substance: DOXORUBICIN
     Indication: XANTHOGRANULOMA
  3. DEXAMETHASONE. [Suspect]
     Active Substance: DEXAMETHASONE
     Indication: XANTHOGRANULOMA

REACTIONS (1)
  - Drug ineffective [Unknown]
